FAERS Safety Report 9918234 (Version 5)
Quarter: 2014Q2

REPORT INFORMATION
  Report Type: Report from Study
  Country: CA (occurrence: CA)
  Receive Date: 20140224
  Receipt Date: 20140519
  Transmission Date: 20141212
  Serious: Yes (Life-Threatening, Hospitalization, Other)
  Sender: FDA-Public Use
  Company Number: CA-ROCHE-1351260

PATIENT
  Age: 81 Year
  Sex: Female
  Weight: 41 kg

DRUGS (21)
  1. ACTEMRA [Suspect]
     Indication: RHEUMATOID ARTHRITIS
     Route: 042
     Dates: start: 20131021, end: 20140218
  2. ANCEF (CANADA) [Concomitant]
  3. OXYNEO [Concomitant]
     Route: 065
  4. OXYCOCET [Concomitant]
  5. PREVACID [Concomitant]
  6. PANTOLOC [Concomitant]
     Route: 065
  7. SPIRIVA [Concomitant]
     Route: 065
  8. VENTOLIN [Concomitant]
  9. FOLIC ACID [Concomitant]
  10. NITRO SPRAY [Concomitant]
  11. COREG [Concomitant]
     Route: 065
  12. ATIVAN [Concomitant]
     Route: 065
  13. ASPIRIN [Concomitant]
     Route: 065
  14. VITAMIN D3 [Concomitant]
     Route: 065
  15. VITAMIN C [Concomitant]
     Route: 065
  16. DIOVAN [Concomitant]
     Route: 065
  17. WELLBUTRIN XL [Concomitant]
     Route: 065
  18. PERCOCET [Concomitant]
     Route: 065
  19. VANCOMYCIN [Concomitant]
  20. FLAGYL [Concomitant]
  21. CEFTRIAXONE [Concomitant]

REACTIONS (11)
  - Atrial fibrillation [Recovered/Resolved]
  - Sepsis [Recovered/Resolved]
  - Gastrointestinal inflammation [Unknown]
  - Colitis [Recovering/Resolving]
  - Peritoneal haemorrhage [Unknown]
  - Dilatation intrahepatic duct acquired [Unknown]
  - Hypotension [Unknown]
  - Postoperative ileus [Unknown]
  - Intestinal ischaemia [Unknown]
  - Aspartate aminotransferase increased [Unknown]
  - Blood alkaline phosphatase increased [Unknown]
